FAERS Safety Report 8213376-4 (Version None)
Quarter: 2012Q1

REPORT INFORMATION
  Report Type: 
  Country: None (occurrence: None)
  Receive Date: 20120315
  Receipt Date: 20120313
  Transmission Date: 20120608
  Serious: Yes (Hospitalization, Other)
  Sender: FDA-Public Use
  Company Number: DE-ABBOTT-11P-062-0734337-00

PATIENT
  Sex: Male
  Weight: 75 kg

DRUGS (4)
  1. HUMIRA [Suspect]
     Indication: PSORIASIS
     Route: 058
     Dates: start: 20090720, end: 20110301
  2. UNKNOWN MEDICATION [Concomitant]
     Indication: PARKINSON'S DISEASE
  3. HUMIRA [Suspect]
     Dates: start: 20110901
  4. ANTIHYPERTENSIVE MEDICATION [Concomitant]
     Indication: HYPERTENSION

REACTIONS (2)
  - COLON ADENOMA [None]
  - INTESTINAL POLYP [None]
